FAERS Safety Report 6389398-5 (Version None)
Quarter: 2009Q4

REPORT INFORMATION
  Report Type: 
  Country: None (occurrence: None)
  Receive Date: 20091006
  Receipt Date: 20090924
  Transmission Date: 20100525
  Serious: Yes (Hospitalization)
  Sender: FDA-Public Use
  Company Number: US-JNJFOC-20090908272

PATIENT
  Age: 5 Year
  Sex: Male
  Weight: 20.41 kg

DRUGS (3)
  1. CHILDREN'S TYLENOL LIQUID VERY BERRY STRAWBERRY [Suspect]
  2. CHILDREN'S TYLENOL LIQUID VERY BERRY STRAWBERRY [Suspect]
     Indication: SNEEZING
  3. UNSPECIFIED ASTHMA INHALER [Concomitant]
     Indication: ASTHMA

REACTIONS (2)
  - ABDOMINAL PAIN UPPER [None]
  - TRANSMISSION OF AN INFECTIOUS AGENT VIA A MEDICINAL PRODUCT [None]
